FAERS Safety Report 19958130 (Version 3)
Quarter: 2021Q4

REPORT INFORMATION
  Report Type: Spontaneous
  Country: JP (occurrence: JP)
  Receive Date: 20211015
  Receipt Date: 20211213
  Transmission Date: 20220303
  Serious: Yes (Other)
  Sender: FDA-Public Use
  Company Number: JP-TAKEDA-2021TJP103654

PATIENT
  Age: 26 Year
  Sex: Female

DRUGS (8)
  1. TRINTELLIX [Suspect]
     Active Substance: VORTIOXETINE HYDROBROMIDE
     Indication: Depression
     Dosage: 10 MILLIGRAM, QD
     Route: 048
     Dates: start: 20210305, end: 20210506
  2. TRINTELLIX [Suspect]
     Active Substance: VORTIOXETINE HYDROBROMIDE
     Dosage: 20 MILLIGRAM, QD
     Route: 048
     Dates: start: 20210507, end: 20210511
  3. TRINTELLIX [Suspect]
     Active Substance: VORTIOXETINE HYDROBROMIDE
     Dosage: 10 MILLIGRAM, QD
     Route: 048
     Dates: start: 20210512, end: 20210922
  4. ABILIFY [Suspect]
     Active Substance: ARIPIPRAZOLE
     Indication: Abulia
     Dosage: 2 MILLIGRAM, QD
     Route: 048
     Dates: start: 20210602, end: 20210615
  5. ABILIFY [Suspect]
     Active Substance: ARIPIPRAZOLE
     Dosage: 3 MILLIGRAM, QD
     Route: 048
     Dates: start: 20210616, end: 20210921
  6. ABILIFY [Suspect]
     Active Substance: ARIPIPRAZOLE
     Dosage: 2 MILLIGRAM, QD
     Route: 048
     Dates: start: 20210922
  7. SERTRALINE [Concomitant]
     Active Substance: SERTRALINE HYDROCHLORIDE
     Indication: Depression
     Dosage: 25 MILLIGRAM, QD
     Route: 048
     Dates: start: 20210206, end: 20210310
  8. BROMAZEPAM [Concomitant]
     Active Substance: BROMAZEPAM
     Indication: Depression
     Dosage: 2 MILLIGRAM, QD
     Route: 048
     Dates: start: 20210305, end: 20210407

REACTIONS (6)
  - Bradycardia [Recovered/Resolved]
  - Hypotension [Recovered/Resolved]
  - Decreased activity [Recovering/Resolving]
  - Malaise [Unknown]
  - Somnolence [Unknown]
  - Listless [Recovered/Resolved]

NARRATIVE: CASE EVENT DATE: 20210512
